FAERS Safety Report 11473407 (Version 3)
Quarter: 2021Q4

REPORT INFORMATION
  Report Type: Spontaneous
  Country: US (occurrence: US)
  Receive Date: 20150908
  Receipt Date: 20211102
  Transmission Date: 20220303
  Serious: Yes (Other)
  Sender: FDA-Public Use
  Company Number: US-JAZZ-2015-US-003579

PATIENT
  Sex: Male

DRUGS (7)
  1. XYREM [Suspect]
     Active Substance: SODIUM OXYBATE
     Indication: Narcolepsy
     Dosage: 2.25 G, BID
     Route: 048
     Dates: start: 201302, end: 201303
  2. XYREM [Suspect]
     Active Substance: SODIUM OXYBATE
     Indication: Cataplexy
     Dosage: DOSE ADJUSTMENTS
     Route: 048
  3. XYREM [Suspect]
     Active Substance: SODIUM OXYBATE
     Dosage: 3.75 G, BID
     Route: 048
     Dates: start: 201404, end: 201411
  4. XYREM [Suspect]
     Active Substance: SODIUM OXYBATE
     Dosage: 3.75 G, BID
     Route: 048
     Dates: start: 201502
  5. EVEKEO [Suspect]
     Active Substance: AMPHETAMINE SULFATE
     Indication: Product used for unknown indication
  6. BENICAR [Concomitant]
     Active Substance: OLMESARTAN MEDOXOMIL
     Indication: Product used for unknown indication
     Dosage: 20 MG, UNK
     Route: 048
     Dates: start: 20150302
  7. NUVIGIL [Concomitant]
     Active Substance: ARMODAFINIL
     Indication: Product used for unknown indication
     Dosage: 150 MG, UNK
     Route: 048
     Dates: start: 20130101

REACTIONS (8)
  - Blood pressure increased [Recovered/Resolved]
  - Heart rate increased [Unknown]
  - Gastrooesophageal reflux disease [Recovered/Resolved]
  - Hypotension [Unknown]
  - Weight increased [Recovered/Resolved]
  - Anxiety [Unknown]
  - Confusional state [Unknown]
  - Headache [Unknown]

NARRATIVE: CASE EVENT DATE: 20140101
